FAERS Safety Report 21749370 (Version 1)
Quarter: 2022Q4

REPORT INFORMATION
  Report Type: Spontaneous
  Country: US (occurrence: None)
  Receive Date: 20221217
  Receipt Date: 20221217
  Transmission Date: 20230113
  Serious: Yes (Hospitalization)
  Sender: FDA-Public Use
  Company Number: None

PATIENT
  Sex: Female

DRUGS (10)
  1. XOLAIR [Suspect]
     Active Substance: OMALIZUMAB
     Indication: Asthma
     Dosage: INJECT 375MG UNDER THE SKIN (SUBCUTANEOUS INJECTION) EVERY FIVE WEEKS
     Route: 058
     Dates: start: 20220923
  2. XOLAIR [Suspect]
     Active Substance: OMALIZUMAB
     Indication: Asthma
     Dosage: 75MG/ML  EVERY FIVE WEEKS SUBCUTANEOUS?
     Route: 058
  3. BENAZEPRIL TAB [Concomitant]
  4. CRESTOR TAB [Concomitant]
  5. FERREX CAP [Concomitant]
  6. GLIMEPIRIDE TAB [Concomitant]
  7. LEVEMIR INJ [Concomitant]
  8. METFORMIN TAB [Concomitant]
  9. MONTELUKAST SODIUM [Concomitant]
     Active Substance: MONTELUKAST SODIUM
  10. VICTOZA INJ [Concomitant]

REACTIONS (2)
  - Quality of life decreased [None]
  - Asthma [None]
